FAERS Safety Report 9532964 (Version 1)
Quarter: 2013Q2

REPORT INFORMATION
  Report Type: Spontaneous
  Country: US (occurrence: None)
  Receive Date: 20130418
  Receipt Date: 20130418
  Transmission Date: 20140414
  Serious: Yes (Other)
  Sender: FDA-Public Use
  Company Number: 2012PROUSA02223

PATIENT
  Age: 78 Year
  Sex: Male
  Weight: 73.5 kg

DRUGS (3)
  1. PROVENGE (SIPULEUCEL-T) SUSPENSION, 250ML [Suspect]
     Indication: PROSTATE CANCER METASTATIC
     Dosage: SINGLE
     Route: 042
     Dates: start: 20121005, end: 20121005
  2. FINASTERIDE (FINASTERIDE) [Concomitant]
  3. TAMSULOSIN (TAMSULOSIN) [Concomitant]

REACTIONS (1)
  - Back pain [None]
